FAERS Safety Report 7226802-4 (Version None)
Quarter: 2011Q1

REPORT INFORMATION
  Report Type: 
  Country: None (occurrence: None)
  Receive Date: 20110110
  Receipt Date: 20110110
  Transmission Date: 20110831
  Serious: Yes (Other)
  Sender: FDA-Public Use
  Company Number: None

PATIENT
  Age: 63 Year
  Sex: Male
  Weight: 71 kg

DRUGS (1)
  1. ERTAPENEM [Suspect]
     Indication: OSTEOMYELITIS
     Dosage: 1000 MG ONCE IM
     Route: 030
     Dates: start: 20101212, end: 20101212

REACTIONS (2)
  - SKIN EXFOLIATION [None]
  - RASH [None]
